FAERS Safety Report 21649046 (Version 1)
Quarter: 2022Q4

REPORT INFORMATION
  Report Type: Report from Study
  Country: US (occurrence: US)
  Receive Date: 20221128
  Receipt Date: 20221128
  Transmission Date: 20230112
  Serious: Yes (Congenital Anomaly, Other)
  Sender: FDA-Public Use
  Company Number: US-002147023-NVSC2022US263103

PATIENT
  Sex: Male

DRUGS (1)
  1. ENTRESTO [Suspect]
     Active Substance: SACUBITRIL\VALSARTAN
     Indication: Foetal exposure during pregnancy
     Dosage: UNK (PATERNAL EXPOSURE DURING PREGNANCY 97-103 MG, BID) START DATE: 24 JAN 2022
     Route: 050

REACTIONS (3)
  - Exomphalos [Unknown]
  - Chronic respiratory disease [Unknown]
  - Exposure via father [Unknown]

NARRATIVE: CASE EVENT DATE: 20220124
